FAERS Safety Report 5529621-X (Version None)
Quarter: 2007Q4

REPORT INFORMATION
  Report Type: 
  Country: None (occurrence: None)
  Receive Date: 20071119
  Receipt Date: 20070905
  Transmission Date: 20080405
  Serious: No
  Sender: FDA-Public Use
  Company Number: TPA2007A01971

PATIENT
  Age: 65 Year
  Sex: Male
  Weight: 106.5953 kg

DRUGS (8)
  1. ROZEREM [Suspect]
     Dosage: PER ORAL
     Route: 048
  2. LEXAPRO [Concomitant]
  3. PROCARDIA XL [Concomitant]
  4. VASOTEC [Concomitant]
  5. MAXZIDE [Concomitant]
  6. ZETIA [Concomitant]
  7. ASPIRIN [Concomitant]
  8. METOPROLOL TARTRATE [Concomitant]

REACTIONS (1)
  - DRUG INEFFECTIVE [None]
